FAERS Safety Report 6709107-7 (Version None)
Quarter: 2010Q2

REPORT INFORMATION
  Report Type: 
  Country: None (occurrence: None)
  Receive Date: 20100503
  Receipt Date: 20100503
  Transmission Date: 20101027
  Serious: No
  Sender: FDA-Public Use
  Company Number: None

PATIENT
  Age: 85 Year
  Sex: Male
  Weight: 57.2 kg

DRUGS (1)
  1. DOCETAXEL [Suspect]
     Indication: PROSTATE CANCER
     Dosage: 130 MG OTHER IV
     Route: 042
     Dates: start: 20100414

REACTIONS (2)
  - BACK PAIN [None]
  - CHEST DISCOMFORT [None]
